FAERS Safety Report 21089587 (Version 1)
Quarter: 2022Q3

REPORT INFORMATION
  Report Type: Spontaneous
  Country: US (occurrence: US)
  Receive Date: 20220715
  Receipt Date: 20220715
  Transmission Date: 20221027
  Serious: Yes (Other)
  Sender: FDA-Public Use
  Company Number: US-PFIZER INC-202200957761

PATIENT
  Age: 58 Year
  Sex: Female
  Weight: 104.33 kg

DRUGS (4)
  1. DIFLUCAN [Suspect]
     Active Substance: FLUCONAZOLE
     Indication: Prophylaxis
     Dosage: UNK (TWICE 3 DAYS APART)
  2. CLARITIN [Suspect]
     Active Substance: LORATADINE
     Dosage: UNK
  3. BENADRYL [Suspect]
     Active Substance: DIPHENHYDRAMINE HYDROCHLORIDE
     Dosage: UNK
  4. CANNABIS SATIVA SUBSP. INDICA TOP [Concomitant]
     Active Substance: CANNABIS SATIVA SUBSP. INDICA TOP
     Dosage: UNK

REACTIONS (25)
  - Haemorrhage [Unknown]
  - Gastrointestinal haemorrhage [Unknown]
  - Vaginal haemorrhage [Unknown]
  - Epistaxis [Unknown]
  - Off label use [Unknown]
  - Illness [Unknown]
  - Asthenia [Unknown]
  - Fatigue [Unknown]
  - Headache [Unknown]
  - Dizziness [Unknown]
  - Body temperature fluctuation [Unknown]
  - Burning sensation [Unknown]
  - Vulvovaginal discomfort [Unknown]
  - Eye irritation [Unknown]
  - Nasal discomfort [Unknown]
  - Throat irritation [Unknown]
  - Anorectal discomfort [Unknown]
  - Tinnitus [Unknown]
  - Faeces discoloured [Unknown]
  - Immune system disorder [Unknown]
  - Eating disorder [Unknown]
  - Flatulence [Unknown]
  - Illness [Unknown]
  - Ocular hyperaemia [Unknown]
  - Sleep disorder [Unknown]
